FAERS Safety Report 7482797-X (Version None)
Quarter: 2011Q2

REPORT INFORMATION
  Report Type: 
  Country: None (occurrence: None)
  Receive Date: 20110516
  Receipt Date: 20110112
  Transmission Date: 20111010
  Serious: No
  Sender: FDA-Public Use
  Company Number: US-BAYER-2011-004444

PATIENT
  Age: 70 Year
  Sex: Female
  Weight: 50.794 kg

DRUGS (2)
  1. ALEVE (CAPLET) [Suspect]
     Indication: NASOPHARYNGITIS
     Dosage: BOTTLE COUNT 50S
     Route: 048
     Dates: start: 20110111
  2. ATENOLOL [Concomitant]
     Dosage: 25 MG, QD

REACTIONS (1)
  - NO ADVERSE EVENT [None]
